FAERS Safety Report 23264923 (Version 1)
Quarter: 2023Q4

REPORT INFORMATION
  Report Type: Spontaneous
  Country: GB (occurrence: GB)
  Receive Date: 20231206
  Receipt Date: 20231206
  Transmission Date: 20240109
  Serious: Yes (Hospitalization)
  Sender: FDA-Public Use
  Company Number: None

PATIENT
  Age: 63 Year
  Sex: Male
  Weight: 76 kg

DRUGS (25)
  1. FUROSEMIDE [Suspect]
     Active Substance: FUROSEMIDE
     Indication: Product used for unknown indication
     Dosage: EACH MORNING
     Dates: start: 20231013
  2. FLUTICASONE FUROATE [Concomitant]
     Active Substance: FLUTICASONE FUROATE
     Dosage: TWO SPRAY IN EACH NOSTRIL
     Dates: start: 20201002
  3. BETAMETHASONE [Concomitant]
     Active Substance: BETAMETHASONE\BETAMETHASONE DIPROPIONATE
     Dosage: APPLY SPARINGLY ONCE OR TWICE  FOR 1-2 WEE...
     Dates: start: 20230821, end: 20230918
  4. CALCIUM\CHOLECALCIFEROL [Concomitant]
     Active Substance: CALCIUM\CHOLECALCIFEROL
     Dates: start: 20180604
  5. CHLORPHENIRAMINE MALEATE [Concomitant]
     Active Substance: CHLORPHENIRAMINE MALEATE
     Dates: start: 20231117
  6. CLOTRIMAZOLE [Concomitant]
     Active Substance: CLOTRIMAZOLE
     Dosage: APPLY TWO TO THREE TIMES, TO TREAT FUNGAL...
     Dates: start: 20230824, end: 20230831
  7. CREON [Concomitant]
     Active Substance: PANCRELIPASE AMYLASE\PANCRELIPASE LIPASE\PANCRELIPASE PROTEASE
     Dosage: 1-2 WITH EACH MEAL. ADJUST ACCORDING T...
     Dates: start: 20231010
  8. DOXYCYCLINE [Concomitant]
     Active Substance: DOXYCYCLINE
     Dates: start: 20230925, end: 20231002
  9. FERROUS FUMARATE [Concomitant]
     Active Substance: FERROUS FUMARATE
     Dates: start: 20231117
  10. FEXOFENADINE [Concomitant]
     Active Substance: FEXOFENADINE HYDROCHLORIDE
     Dosage: TAKE ONE TO TWO  AS ADVISED BY ALLERGY CL...
     Dates: start: 20181107
  11. FOLIC ACID\IRON\MINERALS\VITAMINS [Concomitant]
     Active Substance: FOLIC ACID\IRON\MINERALS\VITAMINS
     Dates: start: 20231010
  12. INDAPAMIDE [Concomitant]
     Active Substance: INDAPAMIDE
     Dosage: DISCUSSED WITH PATIENT
     Dates: start: 20221104
  13. LANSOPRAZOLE [Concomitant]
     Active Substance: LANSOPRAZOLE
     Dates: start: 20221104
  14. LOPERAMIDE [Concomitant]
     Active Substance: LOPERAMIDE
     Dates: start: 20231117
  15. MONTELUKAST [Concomitant]
     Active Substance: MONTELUKAST SODIUM
     Dosage: AT NIGHT
     Dates: start: 20221104
  16. MORPHINE SULFATE [Concomitant]
     Active Substance: MORPHINE SULFATE
     Dates: start: 20231117
  17. NAPROXEN [Concomitant]
     Active Substance: NAPROXEN
     Dosage: WHEN REQUIRED FOR P...
     Dates: start: 20230905, end: 20231003
  18. ACETAMINOPHEN [Concomitant]
     Active Substance: ACETAMINOPHEN
     Dates: start: 20231117
  19. SODIUM PHOSPHATE, MONOBASIC, ANHYDROUS [Concomitant]
     Active Substance: SODIUM PHOSPHATE, MONOBASIC, ANHYDROUS
     Dates: start: 20231117
  20. PREDNISOLONE [Concomitant]
     Active Substance: PREDNISOLONE
     Dates: start: 20230802
  21. QV CREAM [Concomitant]
     Dosage: APPLY LIBERALLY TWO TO FOUR TIMES A DAY
     Dates: start: 20230824, end: 20230921
  22. SPIRONOLACTONE [Concomitant]
     Active Substance: SPIRONOLACTONE
     Dates: start: 20231117
  23. TRIMETHOPRIM [Concomitant]
     Active Substance: TRIMETHOPRIM
     Dates: start: 20230824, end: 20230827
  24. METOLAZONE [Concomitant]
     Active Substance: METOLAZONE
     Dosage: AS ADVISED BY HOSPITAL  METOLAZONE
     Dates: start: 20231117
  25. ZEROBASE [Concomitant]
     Dates: start: 20231117

REACTIONS (3)
  - Skin reaction [Recovering/Resolving]
  - Skin exfoliation [Recovering/Resolving]
  - Rash [Recovering/Resolving]
